FAERS Safety Report 5009583-4 (Version None)
Quarter: 2006Q2

REPORT INFORMATION
  Report Type: 
  Country: None (occurrence: None)
  Receive Date: 20060524
  Receipt Date: 20060511
  Transmission Date: 20061013
  Serious: Yes (Other)
  Sender: FDA-Public Use
  Company Number: PHNR2006AU00771

PATIENT
  Age: 69 Year
  Sex: Male

DRUGS (1)
  1. CYCLOSPORINE [Suspect]

REACTIONS (6)
  - CEREBROVASCULAR ACCIDENT [None]
  - JOINT INJURY [None]
  - OSTEOPOROSIS [None]
  - POLYMYALGIA [None]
  - RASH [None]
  - RENAL IMPAIRMENT [None]
